FAERS Safety Report 4940222-4 (Version None)
Quarter: 2006Q1

REPORT INFORMATION
  Report Type: 
  Country: None (occurrence: None)
  Receive Date: 20060310
  Receipt Date: 20060302
  Transmission Date: 20060701
  Serious: Yes (Hospitalization)
  Sender: FDA-Public Use
  Company Number: US-MERCK-0603USA00633

PATIENT
  Age: 42 Year
  Sex: Female
  Weight: 70 kg

DRUGS (2)
  1. VIOXX [Suspect]
     Indication: ARTHRALGIA
     Route: 048
     Dates: start: 20010601, end: 20020501
  2. IBUPROFEN [Concomitant]
     Route: 065

REACTIONS (4)
  - CHEST PAIN [None]
  - FALL [None]
  - JOINT INJURY [None]
  - MYOCARDIAL INFARCTION [None]
